FAERS Safety Report 15640633 (Version 2)
Quarter: 2018Q4

REPORT INFORMATION
  Report Type: Spontaneous
  Country: US (occurrence: US)
  Receive Date: 20181120
  Receipt Date: 20181127
  Transmission Date: 20190205
  Serious: No
  Sender: FDA-Public Use
  Company Number: US-PFIZER INC-2018467440

PATIENT
  Age: 75 Year
  Sex: Female
  Weight: 113.4 kg

DRUGS (1)
  1. EMBEDA [Suspect]
     Active Substance: MORPHINE SULFATE\NALTREXONE HYDROCHLORIDE
     Dosage: 60 MG, 1X/DAY
     Dates: start: 2016

REACTIONS (2)
  - Drug screen positive [Unknown]
  - Drug effect incomplete [Unknown]
